FAERS Safety Report 6522455-9 (Version None)
Quarter: 2009Q4

REPORT INFORMATION
  Report Type: 
  Country: None (occurrence: None)
  Receive Date: 20091229
  Receipt Date: 20091229
  Transmission Date: 20100525
  Serious: Yes (Other)
  Sender: FDA-Public Use
  Company Number: None

PATIENT
  Age: 69 Year
  Sex: Female
  Weight: 101.1521 kg

DRUGS (2)
  1. NYSTATIN [Suspect]
     Indication: CANDIDIASIS
     Dosage: 5 CCS 3X PER DAY PO
     Route: 048
     Dates: start: 20091223, end: 20091224
  2. NYSTATIN [Suspect]
     Indication: GASTRIC DISORDER
     Dosage: 5 CCS 3X PER DAY PO
     Route: 048
     Dates: start: 20091223, end: 20091224

REACTIONS (5)
  - ERYTHEMA [None]
  - PRURITUS [None]
  - RASH ERYTHEMATOUS [None]
  - SWELLING FACE [None]
  - THROAT TIGHTNESS [None]
